FAERS Safety Report 8525375-3 (Version None)
Quarter: 2012Q3

REPORT INFORMATION
  Report Type: 
  Country: None (occurrence: None)
  Receive Date: 20120710
  Receipt Date: 20120625
  Transmission Date: 20120928
  Serious: Yes (Death)
  Sender: FDA-Public Use
  Company Number: 1336836

PATIENT
  Age: 65 Year
  Sex: Male

DRUGS (2)
  1. CYCLOPHOSPHAMIDE [Suspect]
     Indication: CHRONIC LYMPHOCYTIC LEUKAEMIA
     Dosage: NOT REPORTED
     Dates: start: 20090915, end: 20100628
  2. FLUDARABINE PHOSPHATE [Suspect]
     Indication: CHRONIC LYMPHOCYTIC LEUKAEMIA
     Dosage: NOT REPORTED,
     Dates: start: 20090915, end: 20100628

REACTIONS (1)
  - HISTIOCYTOSIS HAEMATOPHAGIC [None]
